FAERS Safety Report 5316969-7 (Version None)
Quarter: 2007Q1

REPORT INFORMATION
  Report Type: 
  Country: None (occurrence: None)
  Receive Date: 20070130
  Receipt Date: 20061128
  Transmission Date: 20070707
  Serious: No
  Sender: FDA-Public Use
  Company Number: 200619645US

PATIENT
  Sex: Female

DRUGS (1)
  1. KETEK [Suspect]
     Dates: start: 20061127

REACTIONS (1)
  - ABDOMINAL PAIN UPPER [None]
